FAERS Safety Report 7150845-2 (Version None)
Quarter: 2010Q4

REPORT INFORMATION
  Report Type: 
  Country: None (occurrence: None)
  Receive Date: 20101210
  Receipt Date: 20101202
  Transmission Date: 20110411
  Serious: Yes (Other)
  Sender: FDA-Public Use
  Company Number: KR-PFIZER INC-2010163233

PATIENT
  Sex: Male

DRUGS (1)
  1. XANAX [Suspect]
     Indication: ANXIETY
     Dosage: UNKNOWN DOSE, 7 DAYS
     Route: 048

REACTIONS (4)
  - DEPERSONALISATION [None]
  - DYSPHORIA [None]
  - FEELING ABNORMAL [None]
  - MEMORY IMPAIRMENT [None]
